FAERS Safety Report 10308995 (Version 1)
Quarter: 2014Q3

REPORT INFORMATION
  Report Type: Report from Study
  Country: US (occurrence: US)
  Receive Date: 20140716
  Receipt Date: 20140716
  Transmission Date: 20150326
  Serious: Yes (Life-Threatening, Hospitalization)
  Sender: FDA-Public Use
  Company Number: US-JNJFOC-20140707252

PATIENT
  Age: 17 Year
  Sex: Female

DRUGS (1)
  1. NUCYNTA ER [Suspect]
     Active Substance: TAPENTADOL HYDROCHLORIDE
     Indication: PRODUCT USED FOR UNKNOWN INDICATION
     Route: 048

REACTIONS (8)
  - Depressed level of consciousness [Unknown]
  - Anticholinergic syndrome [Unknown]
  - Intentional overdose [Unknown]
  - Agitation [Recovered/Resolved]
  - Somnolence [Recovering/Resolving]
  - Suicide attempt [Recovered/Resolved]
  - Intestinal obstruction [Unknown]
  - Respiratory depression [Unknown]

NARRATIVE: CASE EVENT DATE: 20140312
